FAERS Safety Report 8812955 (Version 1)
Quarter: 2012Q4

REPORT INFORMATION
  Report Type: Report from Study
  Country: DE (occurrence: DE)
  Receive Date: 20120927
  Receipt Date: 20120927
  Transmission Date: 20130627
  Serious: Yes (Hospitalization)
  Sender: FDA-Public Use
  Company Number: DE-ROCHE-1137234

PATIENT
  Age: 43 Year
  Sex: Female
  Weight: 49.7 kg

DRUGS (1)
  1. ZELBORAF [Suspect]
     Indication: MALIGNANT MELANOMA
     Dosage: Date of last dose prior to SAE: 29/Aug/2012
     Route: 048
     Dates: start: 20120308

REACTIONS (1)
  - Vocal cord leukoplakia [Recovered/Resolved]
